FAERS Safety Report 21563787 (Version 1)
Quarter: 2022Q4

REPORT INFORMATION
  Report Type: Spontaneous
  Country: US (occurrence: US)
  Receive Date: 20221108
  Receipt Date: 20221108
  Transmission Date: 20230112
  Serious: Yes (Hospitalization, Other)
  Sender: FDA-Public Use
  Company Number: US-ORG100016242-2022002912

PATIENT

DRUGS (3)
  1. EXPAREL [Suspect]
     Active Substance: BUPIVACAINE
     Indication: Adrenalectomy
     Route: 050
  2. BUPIVACAINE [Suspect]
     Active Substance: BUPIVACAINE
     Indication: Adrenalectomy
     Route: 050
  3. SODIUM CHLORIDE [Concomitant]
     Active Substance: SODIUM CHLORIDE
     Indication: Adrenalectomy
     Route: 050

REACTIONS (4)
  - Postoperative ileus [Unknown]
  - Bronchitis [Unknown]
  - Urinary retention [Unknown]
  - Procedural pain [Unknown]
